FAERS Safety Report 18369683 (Version 1)
Quarter: 2020Q4

REPORT INFORMATION
  Report Type: Spontaneous
  Country: KR (occurrence: KR)
  Receive Date: 20201012
  Receipt Date: 20201012
  Transmission Date: 20210114
  Serious: Yes (Other)
  Sender: FDA-Public Use
  Company Number: KR-SUN PHARMACEUTICAL INDUSTRIES LTD-2020RR-263774

PATIENT
  Age: 21 Year
  Sex: Female

DRUGS (6)
  1. PREDNISOLONE. [Suspect]
     Active Substance: PREDNISOLONE
     Indication: BEHCET^S SYNDROME
     Dosage: UNK
     Route: 065
  2. METHOTREXATE. [Suspect]
     Active Substance: METHOTREXATE
     Indication: BEHCET^S SYNDROME
     Dosage: 7.5 MILLIGRAM, WEEKLY
     Route: 065
  3. INFLIXIMAB [Suspect]
     Active Substance: INFLIXIMAB
     Indication: BEHCET^S SYNDROME
     Dosage: 5 MILLIGRAM/KILOGRAM, UNK
     Route: 065
  4. SULFASALAZINE. [Suspect]
     Active Substance: SULFASALAZINE
     Indication: BEHCET^S SYNDROME
     Dosage: 2 GRAM, DAILY
     Route: 065
  5. ADALIMUMAB [Suspect]
     Active Substance: ADALIMUMAB
     Indication: BEHCET^S SYNDROME
     Dosage: UNK
     Route: 065
  6. METHYLPREDNISOLONE. [Suspect]
     Active Substance: METHYLPREDNISOLONE
     Indication: BEHCET^S SYNDROME
     Dosage: 1 MILLIGRAM/KILOGRAM, UNK
     Route: 065

REACTIONS (3)
  - Drug ineffective [Unknown]
  - Disease recurrence [Unknown]
  - Rash [Unknown]
